FAERS Safety Report 5326714-7 (Version None)
Quarter: 2007Q2

REPORT INFORMATION
  Report Type: 
  Country: None (occurrence: None)
  Receive Date: 20070516
  Receipt Date: 20070427
  Transmission Date: 20071010
  Serious: Yes (Hospitalization)
  Sender: FDA-Public Use
  Company Number: US-BOEHRINGER INGELHEIM PHARMACEUTICALS, INC.-2007-BP-04589BP

PATIENT
  Age: 70 Year
  Sex: Female

DRUGS (10)
  1. SPIRIVA [Suspect]
     Indication: CHRONIC OBSTRUCTIVE PULMONARY DISEASE
     Route: 055
     Dates: start: 20050101
  2. CHANTIX [Suspect]
  3. ADVAIR DISKUS 100/50 [Concomitant]
  4. OXYGEN [Concomitant]
  5. BLOOD PRESSURE MEDICATION [Concomitant]
  6. LISINOPRIL [Concomitant]
  7. PULMICORT [Concomitant]
  8. XOPENEX [Concomitant]
  9. LORAZEPAM [Concomitant]
  10. CLONAZEPAM [Concomitant]

REACTIONS (1)
  - DYSPNOEA [None]
